FAERS Safety Report 5103824-0 (Version None)
Quarter: 2006Q3

REPORT INFORMATION
  Report Type: 
  Country: None (occurrence: None)
  Receive Date: 20060913
  Receipt Date: 20060905
  Transmission Date: 20061208
  Serious: Yes (Other)
  Sender: FDA-Public Use
  Company Number: PHEH2006US11446

PATIENT
  Sex: Male

DRUGS (11)
  1. CYCLOSPORINE [Suspect]
     Indication: HEART TRANSPLANT
     Dosage: 75 MG, UNK
     Route: 048
  2. MAALOX FAST BLOCKER [Concomitant]
     Dosage: 400 MG, UNK
  3. COZAAR [Concomitant]
     Dosage: 100 MG, UNK
  4. CARDURA [Concomitant]
     Dosage: 2 MG, UNK
  5. PRAVACHOL [Concomitant]
     Dosage: 30 MG, UNK
  6. DIMEREX [Concomitant]
     Dosage: 40 MG, UNK
  7. ATENOLOL [Concomitant]
     Dosage: 100 MG, UNK
  8. PREDNISONE TAB [Concomitant]
     Dosage: 5 MG, UNK
  9. GLIPIZIDE [Concomitant]
     Dosage: 5 MG, UNK
  10. NORVASC [Concomitant]
     Dosage: 5 MG, UNK
  11. K-DUR 10 [Concomitant]
     Dosage: 30 MG, UNK

REACTIONS (1)
  - DIABETES MELLITUS [None]
